FAERS Safety Report 8720590 (Version 3)
Quarter: 2015Q2

REPORT INFORMATION
  Report Type: Report from Study
  Country: US (occurrence: US)
  Receive Date: 20120813
  Receipt Date: 20150629
  Transmission Date: 20150821
  Serious: Yes (Life-Threatening, Hospitalization)
  Sender: FDA-Public Use
  Company Number: US-ROCHE-1098740

PATIENT
  Sex: Male

DRUGS (3)
  1. ACTIVASE [Suspect]
     Active Substance: ALTEPLASE
     Indication: MYOCARDIAL INFARCTION
     Route: 040
  2. ACTIVASE [Suspect]
     Active Substance: ALTEPLASE
     Route: 065
  3. ASA [Concomitant]
     Active Substance: ASPIRIN
     Route: 048

REACTIONS (10)
  - Back pain [Unknown]
  - Pulmonary oedema [Unknown]
  - Ventricular fibrillation [Unknown]
  - Arrhythmia [Unknown]
  - Acute kidney injury [Unknown]
  - Cardiac failure congestive [Recovered/Resolved]
  - Shock [Unknown]
  - Headache [Unknown]
  - Blood pressure decreased [Unknown]
  - Pain [Unknown]
